FAERS Safety Report 4398605-X (Version None)
Quarter: 2004Q3

REPORT INFORMATION
  Report Type: 
  Country: None (occurrence: None)
  Receive Date: 20040712
  Receipt Date: 20040629
  Transmission Date: 20050211
  Serious: Yes (Other)
  Sender: FDA-Public Use
  Company Number: 2004218386CA

PATIENT
  Age: 53 Year
  Sex: Female

DRUGS (6)
  1. BEXTRA [Suspect]
     Indication: OSTEOARTHRITIS
     Dosage: 20 MG, QD, ORAL
     Route: 048
     Dates: start: 20040419, end: 20040519
  2. RANITIDINE [Concomitant]
  3. METOPROLOL [Concomitant]
  4. PAROXETINE HCL [Concomitant]
  5. SYNTHROID [Concomitant]
  6. ALTACE [Concomitant]

REACTIONS (2)
  - CONTUSION [None]
  - IDIOPATHIC THROMBOCYTOPENIC PURPURA [None]
